FAERS Safety Report 8763044 (Version 2)
Quarter: 2014Q1

REPORT INFORMATION
  Report Type: Spontaneous
  Country: AU (occurrence: None)
  Receive Date: 20120827
  Receipt Date: 20140214
  Transmission Date: 20141002
  Serious: Yes (Hospitalization, Disabling, Other)
  Sender: FDA-Public Use
  Company Number: 2012000198

PATIENT
  Age: 41 Year
  Sex: Female

DRUGS (2)
  1. ACEON [Suspect]
     Indication: HYPERTENSION
     Route: 048
     Dates: start: 20120619, end: 20120712
  2. COUMADINE [Suspect]
     Indication: DRUG DISPENSING ERROR
     Route: 048
     Dates: start: 20120713, end: 201208

REACTIONS (15)
  - Drug dispensing error [None]
  - Product name confusion [None]
  - Increased tendency to bruise [None]
  - International normalised ratio [None]
  - Wrong drug administered [None]
  - Product barcode issue [None]
  - Activated partial thromboplastin time prolonged [None]
  - Prothrombin time prolonged [None]
  - Vitamin K deficiency [None]
  - Prothrombin level decreased [None]
  - Coagulation factor VII level decreased [None]
  - Coagulation factor IX level decreased [None]
  - Coagulation factor X level decreased [None]
  - Protein C decreased [None]
  - Protein S decreased [None]
